FAERS Safety Report 25952899 (Version 1)
Quarter: 2025Q4

REPORT INFORMATION
  Report Type: Spontaneous
  Country: AU (occurrence: AU)
  Receive Date: 20251023
  Receipt Date: 20251023
  Transmission Date: 20260117
  Serious: Yes (Other)
  Sender: Haleon PLC
  Company Number: AU-MYLANLABS-2024M1047617

PATIENT
  Age: 80 Year
  Sex: Female

DRUGS (3)
  1. VOLTAREN [Suspect]
     Active Substance: DICLOFENAC SODIUM
     Indication: Osteoarthritis
  2. ESCITALOPRAM\ETIZOLAM [Suspect]
     Active Substance: ESCITALOPRAM\ETIZOLAM
     Indication: Depression
  3. ROSUVASTATIN CALCIUM\TELMISARTAN [Suspect]
     Active Substance: ROSUVASTATIN CALCIUM\TELMISARTAN
     Indication: Dyslipidaemia

REACTIONS (7)
  - Chronic myeloid leukaemia [Unknown]
  - Asthma [Unknown]
  - Obesity [Unknown]
  - Hyperparathyroidism [Unknown]
  - Gastrooesophageal reflux disease [Unknown]
  - Hypothyroidism [Unknown]
  - Hypercalcaemia [Unknown]
